FAERS Safety Report 4696387-5 (Version None)
Quarter: 2005Q2

REPORT INFORMATION
  Report Type: 
  Country: None (occurrence: None)
  Receive Date: 20050615
  Receipt Date: 20040622
  Transmission Date: 20051028
  Serious: Yes (Life-Threatening)
  Sender: FDA-Public Use
  Company Number: WAES 0406USA02100

PATIENT
  Age: 71 Year
  Sex: Male

DRUGS (3)
  1. COZAAR [Suspect]
     Indication: HYPERTENSION
     Dosage: 50 MG/DAILY/PO
     Route: 048
     Dates: start: 20040401
  2. TENORMIN [Concomitant]
  3. ZOCOR [Concomitant]

REACTIONS (1)
  - ANGIONEUROTIC OEDEMA [None]
